FAERS Safety Report 19201083 (Version 1)
Quarter: 2021Q2

REPORT INFORMATION
  Report Type: Spontaneous
  Country: US (occurrence: US)
  Receive Date: 20210430
  Receipt Date: 20210430
  Transmission Date: 20210717
  Serious: Yes (Death)
  Sender: FDA-Public Use
  Company Number: None

PATIENT
  Age: 91 Year
  Sex: Female

DRUGS (19)
  1. DOCUSATE CAPSULES [Concomitant]
  2. LEVALBUTEROL NEBULIZER SOLUTION [Concomitant]
  3. SERTRALINE [Concomitant]
     Active Substance: SERTRALINE HYDROCHLORIDE
  4. POTASSIUM CL 10MEQ TABLETS [Concomitant]
  5. AZELASTINE NASAL SPRAY [Concomitant]
     Active Substance: AZELASTINE
  6. HYDROCORTISONE CREAM [Concomitant]
     Active Substance: HYDROCORTISONE
  7. ROSUVASTATIN TABLETS [Concomitant]
     Active Substance: ROSUVASTATIN
  8. SYNTHROID TABLETS [Concomitant]
  9. SENNA TABS [Concomitant]
     Active Substance: SENNOSIDES A AND B
  10. FAMOTIDINE TABLETS [Concomitant]
     Active Substance: FAMOTIDINE
  11. CETIRIZINE [Concomitant]
     Active Substance: CETIRIZINE HYDROCHLORIDE
  12. TOBRAMYCIN. [Suspect]
     Active Substance: TOBRAMYCIN
     Indication: BRONCHIECTASIS
     Route: 055
     Dates: start: 20201030
  13. CEFPODOXIME TABLETS [Concomitant]
     Active Substance: CEFPODOXIME
  14. ENTECAVIR TABLETS [Concomitant]
  15. PREDNISONE TABLETS [Concomitant]
     Active Substance: PREDNISONE
  16. BUDESONIDE NEBULIZER SOLUTION [Concomitant]
  17. MEGESTROL SUSPENSION [Concomitant]
  18. AMOXICILLIN CAPSULES [Concomitant]
     Active Substance: AMOXICILLIN
  19. LIDOCAINE/PRILOCAINE CREAM [Concomitant]
     Active Substance: LIDOCAINE\PRILOCAINE

REACTIONS (1)
  - Death [None]

NARRATIVE: CASE EVENT DATE: 20210301
